FAERS Safety Report 11923095 (Version 2)
Quarter: 2016Q4

REPORT INFORMATION
  Report Type: Report from Study
  Country: US (occurrence: US)
  Receive Date: 20160117
  Receipt Date: 20161121
  Transmission Date: 20170206
  Serious: No
  Sender: FDA-Public Use
  Company Number: US-AMGEN-USASL2016001222

PATIENT
  Age: 60 Year
  Sex: Female

DRUGS (1)
  1. ENBREL [Suspect]
     Active Substance: ETANERCEPT
     Indication: PSORIATIC ARTHROPATHY
     Dosage: 50 MG, QWK
     Route: 065
     Dates: end: 2016

REACTIONS (5)
  - Impaired healing [Recovering/Resolving]
  - Animal scratch [Unknown]
  - Arthralgia [Unknown]
  - Back pain [Unknown]
  - Skin ulcer [Recovering/Resolving]
